FAERS Safety Report 17234923 (Version 1)
Quarter: 2019Q4

REPORT INFORMATION
  Report Type: Spontaneous
  Country: US (occurrence: US)
  Receive Date: 20191210
  Receipt Date: 20191210
  Transmission Date: 20200122
  Serious: Yes (Other)
  Sender: FDA-Public Use
  Company Number: None

PATIENT
  Age: 65 Year
  Sex: Female
  Weight: 65.77 kg

DRUGS (5)
  1. ASHWAGANDA HERB [Concomitant]
  2. ARMOUR THYROID [Concomitant]
     Active Substance: THYROID, PORCINE
  3. NP THYROID [Suspect]
     Active Substance: LEVOTHYROXINE\LIOTHYRONINE
     Indication: HYPOTHYROIDISM
     Dosage: ?          QUANTITY:35;?
     Route: 060
     Dates: start: 2013, end: 20191121
  4. CISTUS TEA - HERVAL TEA [Concomitant]
  5. MULTI VITAMINS [Concomitant]
     Active Substance: VITAMINS

REACTIONS (5)
  - Product quality issue [None]
  - Nausea [None]
  - Product odour abnormal [None]
  - Product taste abnormal [None]
  - Dizziness [None]

NARRATIVE: CASE EVENT DATE: 20191126
